FAERS Safety Report 17067837 (Version 3)
Quarter: 2019Q4

REPORT INFORMATION
  Report Type: Spontaneous
  Country: FR (occurrence: FR)
  Receive Date: 20191122
  Receipt Date: 20191203
  Transmission Date: 20200122
  Serious: Yes (Hospitalization, Other)
  Sender: FDA-Public Use
  Company Number: FR-ELI_LILLY_AND_COMPANY-FR201911005605

PATIENT
  Age: 72 Year
  Sex: Male

DRUGS (30)
  1. ESOMEPRAZOLE. [Suspect]
     Active Substance: ESOMEPRAZOLE MAGNESIUM
     Indication: PRODUCT USED FOR UNKNOWN INDICATION
     Dosage: 20 MG, DAILY
     Route: 048
  2. BACTRIM [Suspect]
     Active Substance: SULFAMETHOXAZOLE\TRIMETHOPRIM
     Dosage: 160 MG TRIMETHOPRIM, THREE TIMES A WEEK (SUNDAY, WEDNESDAY AND FRIDAY)
     Route: 048
     Dates: start: 20190930, end: 20191026
  3. PENTACARINAT [Concomitant]
     Active Substance: PENTAMIDINE ISETHIONATE
     Indication: PRODUCT USED FOR UNKNOWN INDICATION
     Dosage: UNK, UNKNOWN
     Route: 065
  4. VELMETIA [Suspect]
     Active Substance: METFORMIN\SITAGLIPTIN
     Indication: PRODUCT USED FOR UNKNOWN INDICATION
     Dosage: 50 MG SITAGLIPTIN, DAILY
     Route: 048
  5. TAZOCILLINE [Suspect]
     Active Substance: PIPERACILLIN SODIUM\TAZOBACTAM SODIUM
     Dosage: 500 MG TAZOBACTAM, UNKNOWN
     Route: 042
     Dates: start: 20191008, end: 20191008
  6. PELMEG [Suspect]
     Active Substance: PEGFILGRASTIM
     Indication: NEUTROPENIA
     Dosage: 6 MG, UNKNOWN
     Route: 058
     Dates: start: 20191007, end: 20191007
  7. POLARAMINE [Concomitant]
     Active Substance: DEXCHLORPHENIRAMINE MALEATE
     Indication: PRODUCT USED FOR UNKNOWN INDICATION
     Dosage: 1 DOSAGE FORM, UNKNOWN, 1 AMPOULE AT NIGHT
     Route: 065
     Dates: start: 20191029
  8. BEPANTHENE [Concomitant]
     Active Substance: DEXPANTHENOL
     Indication: SKIN EXFOLIATION
     Dosage: UNK, UNKNOWN
     Route: 065
     Dates: start: 20191031
  9. FUROSEMIDE. [Concomitant]
     Active Substance: FUROSEMIDE
     Dosage: 20 MG, UNKNOWN
     Route: 065
     Dates: start: 20191031
  10. HYDROXYZINE [Concomitant]
     Active Substance: HYDROXYZINE HYDROCHLORIDE
     Indication: PRODUCT USED FOR UNKNOWN INDICATION
     Dosage: 1 DOSAGE FORM, UNKNOWN, PM
     Route: 065
     Dates: start: 20191029
  11. CEFTRIAXONE. [Suspect]
     Active Substance: CEFTRIAXONE
     Indication: ANTIBIOTIC THERAPY
     Dosage: 1 G, DAILY
     Route: 042
     Dates: start: 20191008, end: 20191009
  12. KARDEGIC [Suspect]
     Active Substance: ASPIRIN DL-LYSINE
     Indication: PRODUCT USED FOR UNKNOWN INDICATION
     Dosage: 75 MG, DAILY
     Route: 048
  13. ERYTHROPOIETIN [Suspect]
     Active Substance: ERYTHROPOIETIN
     Indication: PRODUCT USED FOR UNKNOWN INDICATION
     Dosage: UNK, UNKNOWN
     Route: 065
  14. VELMETIA [Suspect]
     Active Substance: METFORMIN\SITAGLIPTIN
     Dosage: 1000 MG METFORMIN, DAILY
     Route: 048
  15. ZARZIO [Suspect]
     Active Substance: FILGRASTIM
     Indication: NEUTROPENIA
     Dosage: 30 M[IU], DAILY
     Route: 058
     Dates: start: 20191015, end: 20191020
  16. TAZOCILLINE [Suspect]
     Active Substance: PIPERACILLIN SODIUM\TAZOBACTAM SODIUM
     Indication: FEBRILE BONE MARROW APLASIA
     Dosage: 4 G PIPERACILLIN, UNKNOWN
     Route: 042
     Dates: start: 20191008, end: 20191008
  17. FUROSEMIDE. [Concomitant]
     Active Substance: FUROSEMIDE
     Dosage: 40 MG, UNKNOWN, PM
     Route: 065
     Dates: start: 20191028
  18. DIAMICRON [Suspect]
     Active Substance: GLICLAZIDE
     Indication: PRODUCT USED FOR UNKNOWN INDICATION
     Dosage: 60 MG, DAILY
     Route: 048
     Dates: end: 20191026
  19. FLUVASTATIN [Suspect]
     Active Substance: FLUVASTATIN SODIUM
     Indication: PRODUCT USED FOR UNKNOWN INDICATION
     Dosage: 20 MG, DAILY
     Route: 048
  20. FOLINORAL [Suspect]
     Active Substance: LEUCOVORIN CALCIUM
     Indication: PROPHYLAXIS
     Dosage: 25 MG, WEEKLY (1/W) (SUNDAY)
     Route: 048
     Dates: start: 20190930, end: 20191026
  21. CIPROFLOXACIN. [Suspect]
     Active Substance: CIPROFLOXACIN
     Indication: FEBRILE BONE MARROW APLASIA
     Dosage: 500 MG, BID
     Route: 048
     Dates: start: 20191011, end: 20191018
  22. BACTRIM [Suspect]
     Active Substance: SULFAMETHOXAZOLE\TRIMETHOPRIM
     Indication: INFECTION PROPHYLAXIS
     Dosage: 800 MG SULFAMETHOXAZOLE, THREE TIMES A WEEK (SUNDAY, WEDNESDAY AND FRIDAY)
     Route: 048
     Dates: start: 20190930, end: 20191026
  23. LITAK [Suspect]
     Active Substance: CLADRIBINE
     Indication: HAIRY CELL LEUKAEMIA RECURRENT
     Dosage: 11.6 MG, DAILY (FROM DAY 1 TO DAY 5)
     Route: 058
     Dates: start: 20190930, end: 20191004
  24. VALACICLOVIR [Suspect]
     Active Substance: VALACYCLOVIR HYDROCHLORIDE
     Indication: INFECTION PROPHYLAXIS
     Dosage: 500 MG, BID
     Route: 048
     Dates: start: 20191009, end: 20191026
  25. POLARAMINE [Concomitant]
     Active Substance: DEXCHLORPHENIRAMINE MALEATE
     Dosage: 1 DOSAGE FORM, DAILY
     Route: 065
     Dates: start: 20191031
  26. TRULICITY [Suspect]
     Active Substance: DULAGLUTIDE
     Indication: PRODUCT USED FOR UNKNOWN INDICATION
     Dosage: 1.5 MG, WEEKLY (1/W) (SUNDAY)
     Route: 058
  27. BINOCRIT [Suspect]
     Active Substance: ERYTHROPOIETIN
     Indication: ANAEMIA
     Dosage: 30000 INTERNATIONAL UNIT, WEEKLY (1/W) (MONDAY)
     Route: 058
     Dates: start: 20191014, end: 20191021
  28. FORLAX [MACROGOL 4000] [Suspect]
     Active Substance: POLYETHYLENE GLYCOL 4000
     Indication: PRODUCT USED FOR UNKNOWN INDICATION
     Dosage: 10 G, PRN
     Route: 048
  29. RAMIPRIL. [Suspect]
     Active Substance: RAMIPRIL
     Indication: PRODUCT USED FOR UNKNOWN INDICATION
     Dosage: 2.5 MG, DAILY
     Route: 048
  30. FUROSEMIDE. [Concomitant]
     Active Substance: FUROSEMIDE
     Indication: PRODUCT USED FOR UNKNOWN INDICATION
     Dosage: 40 MG, DAILY, IN THE MORNINGS
     Route: 065
     Dates: start: 20191029

REACTIONS (8)
  - Anaemia [Unknown]
  - Febrile bone marrow aplasia [Recovered/Resolved]
  - Rash [Not Recovered/Not Resolved]
  - Face oedema [Unknown]
  - Pruritus [Recovered/Resolved]
  - Generalised oedema [Not Recovered/Not Resolved]
  - Dysuria [Unknown]
  - Neutropenia [Unknown]

NARRATIVE: CASE EVENT DATE: 201910
